FAERS Safety Report 6657383-1 (Version None)
Quarter: 2010Q1

REPORT INFORMATION
  Report Type: 
  Country: None (occurrence: None)
  Receive Date: 20100330
  Receipt Date: 20100329
  Transmission Date: 20100710
  Serious: Yes (Hospitalization)
  Sender: FDA-Public Use
  Company Number: FR-SANOFI-AVENTIS-2010SA017812

PATIENT
  Age: 39 Year
  Sex: Male

DRUGS (2)
  1. ARAVA [Suspect]
     Route: 048
  2. ARAVA [Suspect]
     Route: 048

REACTIONS (3)
  - IMPAIRED GASTRIC EMPTYING [None]
  - SUBILEUS [None]
  - WEIGHT DECREASED [None]
